FAERS Safety Report 21415338 (Version 1)
Quarter: 2022Q4

REPORT INFORMATION
  Report Type: Spontaneous
  Country: US (occurrence: None)
  Receive Date: 20221006
  Receipt Date: 20221006
  Transmission Date: 20230112
  Serious: Yes (Hospitalization, Other)
  Sender: FDA-Public Use
  Company Number: US-Hikma Pharmaceuticals USA Inc.-US-H14001-22-00200

PATIENT
  Sex: Female

DRUGS (3)
  1. INFUMORPH [Suspect]
     Active Substance: MORPHINE SULFATE
     Indication: Spinal pain
     Route: 037
     Dates: start: 20080211
  2. INFUMORPH [Suspect]
     Active Substance: MORPHINE SULFATE
     Dosage: 8.79 MG DAILY (ALSO REPORTED AS 2 MG DAILY AND 2.02 MG DAILY)
     Route: 037
     Dates: start: 20210820
  3. PERCOCET [Concomitant]
     Active Substance: ACETAMINOPHEN\OXYCODONE HYDROCHLORIDE
     Indication: Spinal pain
     Dosage: UNKNOWN
     Route: 065

REACTIONS (3)
  - Product dose omission issue [Recovered/Resolved]
  - Withdrawal syndrome [Unknown]
  - Feeling abnormal [Unknown]
